FAERS Safety Report 21045985 (Version 1)
Quarter: 2022Q3

REPORT INFORMATION
  Report Type: Report from Study
  Country: FR (occurrence: FR)
  Receive Date: 20220706
  Receipt Date: 20220706
  Transmission Date: 20221027
  Serious: Yes (Hospitalization)
  Sender: FDA-Public Use
  Company Number: FR-SA-SAC20220630000185

PATIENT
  Age: 65 Year
  Sex: Male

DRUGS (8)
  1. ISATUXIMAB [Suspect]
     Active Substance: ISATUXIMAB
     Indication: Plasma cell myeloma
     Dosage: 780 MG
     Dates: start: 20220302, end: 20220302
  2. ISATUXIMAB [Suspect]
     Active Substance: ISATUXIMAB
     Dosage: 780 MG ( (THERAPY INTERUPTED SINCE 21-JUN-2022))
     Dates: start: 20220621, end: 20220621
  3. CARFILZOMIB [Suspect]
     Active Substance: CARFILZOMIB
     Indication: Plasma cell myeloma
     Dosage: 38.2 MG
     Dates: start: 20220302, end: 20220302
  4. CARFILZOMIB [Suspect]
     Active Substance: CARFILZOMIB
     Dosage: 38.2 MG (THERAPY INTERUPTED SINCE 21-JUN-2022)
     Dates: start: 20220621, end: 20220621
  5. POMALIDOMIDE [Suspect]
     Active Substance: POMALIDOMIDE
     Indication: Plasma cell myeloma
     Dosage: 3 MG
     Dates: start: 20220302, end: 20220302
  6. POMALIDOMIDE [Suspect]
     Active Substance: POMALIDOMIDE
     Dosage: 3 MG (THERAPY INTERUPTED SINCE 24-JUN-2022)
     Dates: start: 20220621, end: 20220624
  7. DEXAMETHASONE [Concomitant]
     Active Substance: DEXAMETHASONE
     Indication: Plasma cell myeloma
     Dosage: 40 MG
     Dates: start: 20220302, end: 20220302
  8. DEXAMETHASONE [Concomitant]
     Active Substance: DEXAMETHASONE
     Dosage: 40 MG
     Dates: start: 20220621, end: 20220621

REACTIONS (1)
  - Sepsis [Not Recovered/Not Resolved]

NARRATIVE: CASE EVENT DATE: 20220624
